FAERS Safety Report 21823353 (Version 29)
Quarter: 2025Q3

REPORT INFORMATION
  Report Type: Report from Study
  Country: US (occurrence: US)
  Receive Date: 20230105
  Receipt Date: 20250905
  Transmission Date: 20251021
  Serious: Yes (Hospitalization, Other)
  Sender: TAKEDA
  Company Number: US-TAKEDA-2022TUS014101

PATIENT
  Age: 43 Year
  Sex: Female
  Weight: 96 kg

DRUGS (60)
  1. HUMAN IMMUNOGLOBULIN G [Suspect]
     Active Substance: HUMAN IMMUNOGLOBULIN G
     Indication: Autonomic neuropathy
     Dosage: 400 MILLIGRAM/KILOGRAM, 1/WEEK
  2. HUMAN IMMUNOGLOBULIN G [Suspect]
     Active Substance: HUMAN IMMUNOGLOBULIN G
     Indication: Impaired gastric emptying
     Dosage: 41 GRAM, 1/WEEK
  3. HUMAN IMMUNOGLOBULIN G [Suspect]
     Active Substance: HUMAN IMMUNOGLOBULIN G
     Indication: Gastrointestinal disorder
     Dosage: 40 GRAM, 1/WEEK
  4. BACTRIM [Suspect]
     Active Substance: SULFAMETHOXAZOLE\TRIMETHOPRIM
     Indication: Product used for unknown indication
  5. EPINEPHRINE [Concomitant]
     Active Substance: EPINEPHRINE
  6. ACETAMINOPHEN [Concomitant]
     Active Substance: ACETAMINOPHEN
  7. DICYCLOMINE HYDROCHLORIDE [Concomitant]
     Active Substance: DICYCLOMINE HYDROCHLORIDE
  8. BAQSIMI [Concomitant]
     Active Substance: GLUCAGON
  9. PYRIDOSTIGMINE BROMIDE [Concomitant]
     Active Substance: PYRIDOSTIGMINE BROMIDE
  10. MECLIZINE HYDROCHLORIDE [Concomitant]
     Active Substance: MECLIZINE HYDROCHLORIDE
  11. LUBIPROSTONE [Concomitant]
     Active Substance: LUBIPROSTONE
  12. IBUPROFEN [Concomitant]
     Active Substance: IBUPROFEN
  13. ADDERALL [Concomitant]
     Active Substance: AMPHETAMINE ASPARTATE\AMPHETAMINE SULFATE\DEXTROAMPHETAMINE SACCHARATE\DEXTROAMPHETAMINE SULFATE
  14. GLUCAGON [Concomitant]
     Active Substance: GLUCAGON
  15. INSULIN LISPRO [Concomitant]
     Active Substance: INSULIN LISPRO
  16. NARATRIPTAN HYDROCHLORIDE [Concomitant]
     Active Substance: NARATRIPTAN HYDROCHLORIDE
  17. SODIUM CHLORIDE [Concomitant]
     Active Substance: SODIUM CHLORIDE
  18. HEPARIN [Concomitant]
     Active Substance: HEPARIN SODIUM
  19. PANTOPRAZOLE SODIUM [Concomitant]
     Active Substance: PANTOPRAZOLE SODIUM
  20. MAGNESIUM [Concomitant]
     Active Substance: MAGNESIUM
  21. SUCRALFATE [Concomitant]
     Active Substance: SUCRALFATE
  22. LIDOCAINE [Concomitant]
     Active Substance: LIDOCAINE
  23. APREPITANT [Concomitant]
     Active Substance: APREPITANT
  24. DIAZEPAM [Concomitant]
     Active Substance: DIAZEPAM
  25. RIZATRIPTAN [Concomitant]
     Active Substance: RIZATRIPTAN
  26. PROMETHAZINE HYDROCHLORIDE [Concomitant]
     Active Substance: PROMETHAZINE HYDROCHLORIDE
  27. Lmx [Concomitant]
  28. DIPHENHYDRAMINE HYDROCHLORIDE [Concomitant]
     Active Substance: DIPHENHYDRAMINE HYDROCHLORIDE
  29. AIMOVIG [Concomitant]
     Active Substance: ERENUMAB-AOOE
  30. GABAPENTIN [Concomitant]
     Active Substance: GABAPENTIN
  31. OMEPRAZOLE [Concomitant]
     Active Substance: OMEPRAZOLE
  32. HYOSCYAMINE SULFATE [Concomitant]
     Active Substance: HYOSCYAMINE SULFATE
  33. ZYRTEC [Concomitant]
     Active Substance: CETIRIZINE HYDROCHLORIDE
  34. SODIUM CHLORIDE [Concomitant]
     Active Substance: SODIUM CHLORIDE
  35. ONDANSETRON HYDROCHLORIDE [Concomitant]
     Active Substance: ONDANSETRON HYDROCHLORIDE
  36. CYMBALTA [Concomitant]
     Active Substance: DULOXETINE HYDROCHLORIDE
  37. OXYCODONE AND ACETAMINOPHEN [Concomitant]
     Active Substance: ACETAMINOPHEN\OXYCODONE HYDROCHLORIDE
  38. CYCLOBENZAPRINE HYDROCHLORIDE [Concomitant]
     Active Substance: CYCLOBENZAPRINE HYDROCHLORIDE
  39. DICLOFENAC SODIUM [Concomitant]
     Active Substance: DICLOFENAC SODIUM
  40. MUCUS [Concomitant]
     Active Substance: GUAIFENESIN
  41. DIPHENHYDRAMINE [Concomitant]
     Active Substance: DIPHENHYDRAMINE
  42. PANTOPRAZOLE [Concomitant]
     Active Substance: PANTOPRAZOLE
  43. LINZESS [Concomitant]
     Active Substance: LINACLOTIDE
  44. ZELNORM [Concomitant]
     Active Substance: TEGASEROD MALEATE
  45. MIRALAX [Concomitant]
     Active Substance: POLYETHYLENE GLYCOL 3350
  46. ONDANSETRON [Concomitant]
     Active Substance: ONDANSETRON
  47. MOTEGRITY [Concomitant]
     Active Substance: PRUCALOPRIDE SUCCINATE
  48. COLACE [Concomitant]
     Active Substance: DOCUSATE SODIUM
  49. TRAZODONE HCL [Concomitant]
     Active Substance: TRAZODONE HYDROCHLORIDE
  50. TRAMADOL HCL [Concomitant]
     Active Substance: TRAMADOL HYDROCHLORIDE
  51. MIRTAZAPINE [Concomitant]
     Active Substance: MIRTAZAPINE
  52. VITAMIN B [Concomitant]
     Active Substance: VITAMIN B
  53. SPRAVATO [Concomitant]
     Active Substance: ESKETAMINE
  54. Dulcolax [Concomitant]
  55. MILK OF MAGNESIA [Concomitant]
     Active Substance: MAGNESIUM HYDROXIDE
  56. MELOXICAM [Concomitant]
     Active Substance: MELOXICAM
  57. MAGNESIUM CITRATE [Concomitant]
     Active Substance: MAGNESIUM CITRATE
  58. PRAZOSIN HYDROCHLORIDE [Concomitant]
     Active Substance: PRAZOSIN HYDROCHLORIDE
  59. IBSRELA [Concomitant]
     Active Substance: TENAPANOR HYDROCHLORIDE
  60. BUSPIRONE HCL [Concomitant]
     Active Substance: BUSPIRONE HYDROCHLORIDE

REACTIONS (38)
  - Pancreatitis [Unknown]
  - Impaired gastric emptying [Unknown]
  - Kidney infection [Unknown]
  - Lower respiratory tract infection [Recovering/Resolving]
  - Thrombosis [Unknown]
  - Abdominal pain upper [Unknown]
  - Pulmonary embolism [Unknown]
  - Deep vein thrombosis [Unknown]
  - Migraine [Unknown]
  - Fungal infection [Unknown]
  - Catheter site extravasation [Unknown]
  - Viral pharyngitis [Unknown]
  - Rhinalgia [Unknown]
  - Insurance issue [Unknown]
  - Constipation [Unknown]
  - Urinary tract infection [Unknown]
  - Blood urine present [Unknown]
  - Mobility decreased [Unknown]
  - Peripheral swelling [Unknown]
  - Dyschezia [Unknown]
  - Product use issue [Unknown]
  - Product dose omission issue [Unknown]
  - Off label use [Unknown]
  - Product distribution issue [Unknown]
  - Product availability issue [Unknown]
  - Respiratory tract congestion [Recovering/Resolving]
  - Productive cough [Recovering/Resolving]
  - Ovarian cyst [Unknown]
  - Varicose vein [Unknown]
  - Feeling abnormal [Unknown]
  - Vertigo [Unknown]
  - Pain [Unknown]
  - Oedema [Unknown]
  - Malaise [Unknown]
  - Vomiting [Unknown]
  - Nausea [Unknown]
  - Headache [Unknown]
  - Dizziness [Unknown]

NARRATIVE: CASE EVENT DATE: 20220224
